FAERS Safety Report 5425855-3 (Version None)
Quarter: 2007Q3

REPORT INFORMATION
  Report Type: 
  Country: None (occurrence: None)
  Receive Date: 20070823
  Receipt Date: 20070807
  Transmission Date: 20080115
  Serious: Yes (Other)
  Sender: FDA-Public Use
  Company Number: DSA_61679_2007

PATIENT
  Sex: Female

DRUGS (5)
  1. DIASTAT [Suspect]
     Indication: EPILEPSY
     Dosage: DF
  2. TOPAMAX [Suspect]
     Indication: EPILEPSY
     Dosage: DF
  3. PHENOBARBITAL TAB [Suspect]
     Indication: EPILEPSY
     Dosage: DF
  4. CLONAZEPAM [Concomitant]
  5. KEPPRA [Concomitant]

REACTIONS (8)
  - DRUG INEFFECTIVE [None]
  - DRUG WITHDRAWAL SYNDROME [None]
  - GRAND MAL CONVULSION [None]
  - MYOCLONIC EPILEPSY [None]
  - PETIT MAL EPILEPSY [None]
  - PHARMACEUTICAL PRODUCT COMPLAINT [None]
  - RESPIRATORY ARREST [None]
  - STATUS EPILEPTICUS [None]
